FAERS Safety Report 7583447-4 (Version None)
Quarter: 2011Q2

REPORT INFORMATION
  Report Type: 
  Country: None (occurrence: None)
  Receive Date: 20110630
  Receipt Date: 20110621
  Transmission Date: 20111010
  Serious: Yes (Hospitalization, Other)
  Sender: FDA-Public Use
  Company Number: US-EISAI INC-E7389-01041-CLI-US

PATIENT
  Sex: Female
  Weight: 61 kg

DRUGS (9)
  1. AMBIEN [Concomitant]
     Indication: SLEEP DISORDER
     Dates: start: 20100505
  2. EPIRUBICIN HYDROCHLORIDE [Suspect]
     Indication: NON-SMALL CELL LUNG CANCER
     Route: 041
     Dates: start: 20101019, end: 20101019
  3. MULTI-VITAMIN [Concomitant]
     Route: 048
     Dates: start: 20100505
  4. ZOFRAN [Concomitant]
     Indication: NAUSEA
  5. ATIVAN [Concomitant]
     Indication: PREMEDICATION
     Dates: start: 20100630
  6. ERLOTINIB HYDROCHLORIDE [Suspect]
     Route: 048
     Dates: start: 20101020, end: 20101028
  7. ATIVAN [Concomitant]
     Indication: NAUSEA
  8. OXYCODONE HCL [Concomitant]
     Indication: PAIN
     Dates: start: 20100630
  9. ZOFRAN [Concomitant]
     Indication: PREMEDICATION
     Dates: start: 20101019

REACTIONS (1)
  - PERICARDIAL EFFUSION [None]
